FAERS Safety Report 6005984-6 (Version None)
Quarter: 2008Q4

REPORT INFORMATION
  Report Type: 
  Country: None (occurrence: None)
  Receive Date: 20081217
  Receipt Date: 20081215
  Transmission Date: 20090506
  Serious: Yes (Death, Other)
  Sender: FDA-Public Use
  Company Number: PHBS2008AT06669

PATIENT
  Age: 34 Year
  Sex: Female

DRUGS (3)
  1. CYCLOSPORINE [Suspect]
     Indication: PARANEOPLASTIC PEMPHIGUS
     Dosage: 2 MG/KG, BID
     Route: 042
  2. IMMUNE GLOBULIN NOS [Concomitant]
     Dosage: 2 G/KG/DAY
     Route: 042
  3. METHYLPREDNISOLONE 16MG TAB [Concomitant]
     Dosage: 1.5 MG/KG/DAY
     Route: 065

REACTIONS (9)
  - DERMATITIS EXFOLIATIVE [None]
  - DISEASE PROGRESSION [None]
  - ERYTHEMA [None]
  - HERPES SIMPLEX [None]
  - MUCOSAL EROSION [None]
  - MULTI-ORGAN FAILURE [None]
  - PARANEOPLASTIC PEMPHIGUS [None]
  - SEPSIS [None]
  - SKIN NECROSIS [None]
